FAERS Safety Report 6758999-4 (Version None)
Quarter: 2010Q2

REPORT INFORMATION
  Report Type: 
  Country: None (occurrence: None)
  Receive Date: 20100603
  Receipt Date: 20100525
  Transmission Date: 20101027
  Serious: Yes (Other)
  Sender: FDA-Public Use
  Company Number: 1000005786

PATIENT
  Age: 29 Year
  Sex: Female
  Weight: 81.5 kg

DRUGS (2)
  1. ESCITALOPRAM [Suspect]
     Dosage: 20 MG (20 MG, 1 IN 1 D)
  2. ESCITALOPRAM [Suspect]
     Dosage: 5 MG (5 MG, 1 IN 1 D)

REACTIONS (3)
  - DRUG EXPOSURE DURING PREGNANCY [None]
  - PREGNANCY [None]
  - TOXOPLASMOSIS [None]
